FAERS Safety Report 7892868-1 (Version None)
Quarter: 2011Q4

REPORT INFORMATION
  Report Type: 
  Country: None (occurrence: None)
  Receive Date: 20111104
  Receipt Date: 20111025
  Transmission Date: 20120403
  Serious: Yes (Other)
  Sender: FDA-Public Use
  Company Number: BR-BRISTOL-MYERS SQUIBB COMPANY-16213886

PATIENT
  Age: 53 Year
  Sex: Male
  Weight: 107 kg

DRUGS (7)
  1. DIOVAN [Concomitant]
     Dosage: 1DF:160/12.5/5MG DIOVAN TRIPLO
     Dates: start: 20110501
  2. ASPIRIN [Concomitant]
     Dates: start: 20110501
  3. EXFORGE [Concomitant]
     Dosage: MAY11-12JUL11 320/5MG 12JUL11-UNK 320/10MG
     Dates: start: 20110501
  4. METOPROLOL SUCCINATE [Concomitant]
     Dates: start: 20110501
  5. METFFORMIN HYDROCHLORIDE [Suspect]
  6. HYDROCHLOROTHIAZIDE [Concomitant]
     Dates: start: 20110501
  7. VYTORIN [Concomitant]
     Dosage: 1DF:10/20 UNITS NOS
     Dates: start: 20110501

REACTIONS (4)
  - LEFT VENTRICULAR HYPERTROPHY [None]
  - VENTRICULAR DYSFUNCTION [None]
  - HEPATIC STEATOSIS [None]
  - RENAL CELL CARCINOMA [None]
